FAERS Safety Report 25451629 (Version 3)
Quarter: 2025Q3

REPORT INFORMATION
  Report Type: Spontaneous
  Country: US (occurrence: US)
  Receive Date: 20250618
  Receipt Date: 20250716
  Transmission Date: 20251021
  Serious: No
  Sender: BAYER HEALTHCARE PHARMACEUTICALS INC.
  Company Number: US-BAYER-2025A080597

PATIENT
  Age: 54 Year
  Sex: Female

DRUGS (2)
  1. ESTRADIOL [Suspect]
     Active Substance: ESTRADIOL
     Dosage: UNK, OW
     Route: 062
     Dates: start: 202506
  2. PROGESTERONE [Suspect]
     Active Substance: PROGESTERONE
     Route: 048

REACTIONS (3)
  - Device adhesion issue [None]
  - Product dose omission issue [None]
  - Expired device used [None]

NARRATIVE: CASE EVENT DATE: 20250601
